FAERS Safety Report 9497115 (Version 1)
Quarter: 2013Q3

REPORT INFORMATION
  Report Type: Spontaneous
  Country: US (occurrence: US)
  Receive Date: 20130904
  Receipt Date: 20130904
  Transmission Date: 20140515
  Serious: No
  Sender: FDA-Public Use
  Company Number: US-AMGEN-USASP2013055667

PATIENT
  Age: 55 Year
  Sex: Female
  Weight: 61.22 kg

DRUGS (5)
  1. ENBREL [Suspect]
     Indication: RHEUMATOID ARTHRITIS
     Dosage: UNK UNK, 1 IN 1 WEEK
     Route: 065
     Dates: start: 201303, end: 20130627
  2. HUMIRA [Suspect]
     Indication: RHEUMATOID ARTHRITIS
     Dosage: 40 MG, ONE IN TWO WEEKS
     Route: 058
     Dates: start: 200908, end: 201303
  3. METHOTREXATE [Concomitant]
     Indication: RHEUMATOID ARTHRITIS
     Dosage: 2.5 MG, ONE IN ONE WEEK
  4. FOLIC ACID [Concomitant]
     Indication: VITAMIN SUPPLEMENTATION
     Dosage: 3 MG (1 MG, 3  IN 1 DAY)
  5. PAXIL                              /00830802/ [Concomitant]
     Indication: DEPRESSION
     Dosage: 20 MG, ONE IN ONE DAY

REACTIONS (5)
  - Injection site mass [Recovered/Resolved]
  - Lacrimation increased [Unknown]
  - Sneezing [Unknown]
  - Rhinorrhoea [Unknown]
  - Injection site pruritus [Unknown]
